FAERS Safety Report 7027411-2 (Version None)
Quarter: 2010Q4

REPORT INFORMATION
  Report Type: 
  Country: None (occurrence: None)
  Receive Date: 20101001
  Receipt Date: 20101001
  Transmission Date: 20110411
  Serious: No
  Sender: FDA-Public Use
  Company Number: None

PATIENT
  Age: 56 Year
  Sex: Female
  Weight: 75.7507 kg

DRUGS (1)
  1. VENLAFAXINE HCL [Suspect]
     Dosage: 150 MG DAILY ORAL
     Route: 048
     Dates: start: 20100724, end: 20100730

REACTIONS (1)
  - HEADACHE [None]
